FAERS Safety Report 5281321-X (Version None)
Quarter: 2007Q1

REPORT INFORMATION
  Report Type: 
  Country: None (occurrence: None)
  Receive Date: 20061221
  Receipt Date: 20040126
  Transmission Date: 20070707
  Serious: Yes (Hospitalization)
  Sender: FDA-Public Use
  Company Number: 2004AP00487

PATIENT
  Age: 10 Day
  Sex: Male

DRUGS (3)
  1. EMLA [Suspect]
     Indication: CIRCUMCISION
  2. EMLA [Suspect]
     Indication: POST PROCEDURAL DISCOMFORT
  3. ACETAMINOPHEN [Concomitant]

REACTIONS (1)
  - METHAEMOGLOBINAEMIA [None]
